FAERS Safety Report 25645701 (Version 3)
Quarter: 2025Q3

REPORT INFORMATION
  Report Type: Spontaneous
  Country: US (occurrence: US)
  Receive Date: 20250805
  Receipt Date: 20250829
  Transmission Date: 20251021
  Serious: No
  Sender: ABBVIE
  Company Number: US-ABBVIE-6394022

PATIENT
  Age: 36 Year
  Sex: Female

DRUGS (5)
  1. UBRELVY [Suspect]
     Active Substance: UBROGEPANT
     Indication: Migraine
     Route: 048
     Dates: start: 20250115
  2. NURTEC ODT [Suspect]
     Active Substance: RIMEGEPANT SULFATE
     Indication: Migraine
     Route: 065
     Dates: start: 20250115
  3. MIDOL (IBUPROFEN) [Suspect]
     Active Substance: IBUPROFEN
     Indication: Migraine
     Route: 048
     Dates: start: 2023
  4. SUMATRIPTAN [Suspect]
     Active Substance: SUMATRIPTAN
     Indication: Migraine
     Route: 048
     Dates: start: 202403
  5. PROPRANOLOL [Suspect]
     Active Substance: PROPRANOLOL HYDROCHLORIDE
     Indication: Migraine
     Route: 048
     Dates: start: 202404

REACTIONS (3)
  - Maternal exposure during pregnancy [Unknown]
  - Gestational hypertension [Unknown]
  - Live birth [Unknown]

NARRATIVE: CASE EVENT DATE: 20250430
